FAERS Safety Report 6295275-0 (Version None)
Quarter: 2009Q3

REPORT INFORMATION
  Report Type: 
  Country: None (occurrence: None)
  Receive Date: 20090803
  Receipt Date: 20090721
  Transmission Date: 20100115
  Serious: Yes (Life-Threatening, Hospitalization)
  Sender: FDA-Public Use
  Company Number: GB-MYLANLABS-2009S1012994

PATIENT
  Age: 86 Year
  Sex: Male

DRUGS (8)
  1. NAPROXEN [Suspect]
     Indication: GOUT
     Dates: end: 20090626
  2. NAPROXEN [Suspect]
     Dates: end: 20090626
  3. ASPIRIN [Suspect]
     Indication: ATRIAL FIBRILLATION
     Dates: end: 20090626
  4. ASPIRIN [Suspect]
     Indication: HYPERTENSION
     Dates: end: 20090626
  5. BENDROFLUMETHIAZIDE [Concomitant]
     Indication: HYPERTENSION
     Route: 048
  6. DIGOXIN [Concomitant]
     Indication: ATRIAL FIBRILLATION
     Route: 048
  7. OMEPRAZOLE [Concomitant]
     Indication: GASTROINTESTINAL HAEMORRHAGE
     Route: 048
     Dates: start: 20090626
  8. SIMVASTATIN [Concomitant]
     Indication: DRUG USE FOR UNKNOWN INDICATION
     Route: 048

REACTIONS (5)
  - ABDOMINAL DISCOMFORT [None]
  - DYSPNOEA [None]
  - MELAENA [None]
  - NAUSEA [None]
  - PALLOR [None]
